FAERS Safety Report 5118809-8 (Version None)
Quarter: 2006Q4

REPORT INFORMATION
  Report Type: 
  Country: None (occurrence: None)
  Receive Date: 20061002
  Receipt Date: 20060504
  Transmission Date: 20070319
  Serious: Yes (Life-Threatening, Hospitalization)
  Sender: FDA-Public Use
  Company Number: CA-BRISTOL-MYERS SQUIBB COMPANY-13367735

PATIENT
  Age: 55 Year
  Sex: Male
  Weight: 90 kg

DRUGS (7)
  1. ERBITUX [Suspect]
     Indication: COLORECTAL CANCER
     Route: 042
     Dates: start: 20050505, end: 20050505
  2. METAMUCIL [Concomitant]
     Indication: CONSTIPATION
     Dates: start: 20050213
  3. LACTULOSE [Concomitant]
     Indication: CONSTIPATION
     Dates: start: 20050401
  4. MORPHINE HCL [Concomitant]
     Indication: ABDOMINAL PAIN
     Dates: start: 20050331
  5. MARINOL [Concomitant]
     Indication: INSOMNIA
     Dates: start: 20050408
  6. IMOVANE [Concomitant]
     Indication: INSOMNIA
     Dates: start: 20050505
  7. TYLENOL [Concomitant]
     Dates: start: 20060512

REACTIONS (6)
  - ANAPHYLACTIC REACTION [None]
  - APNOEA [None]
  - DYSPNOEA [None]
  - HYPOTENSION [None]
  - HYPOXIA [None]
  - SYNCOPE [None]
